FAERS Safety Report 24203898 (Version 2)
Quarter: 2024Q3

REPORT INFORMATION
  Report Type: Report from Study
  Country: RO (occurrence: RO)
  Receive Date: 20240813
  Receipt Date: 20240828
  Transmission Date: 20241016
  Serious: Yes (Death, Other)
  Sender: ROCHE
  Company Number: RO-ROCHE-10000049483

PATIENT

DRUGS (3)
  1. AVASTIN [Suspect]
     Active Substance: BEVACIZUMAB
     Indication: Neoplasm malignant
     Route: 042
  2. AVASTIN [Suspect]
     Active Substance: BEVACIZUMAB
     Indication: Hepatic cancer
  3. AVASTIN [Suspect]
     Active Substance: BEVACIZUMAB
     Indication: Pancreatic carcinoma metastatic

REACTIONS (18)
  - Gastrointestinal perforation [Unknown]
  - Embolism [Fatal]
  - Haemorrhage [Unknown]
  - Proteinuria [Unknown]
  - Thrombosis [Unknown]
  - Embolism [Unknown]
  - Infusion related reaction [Unknown]
  - Thrombocytopenia [Unknown]
  - Cardiovascular disorder [Unknown]
  - Impaired healing [Unknown]
  - Abdominal pain [Unknown]
  - Nausea [Unknown]
  - Vomiting [Unknown]
  - Fatigue [Unknown]
  - Sepsis [Fatal]
  - Diarrhoea [Unknown]
  - Off label use [Fatal]
  - Hypertension [Unknown]
